FAERS Safety Report 4354074-7 (Version None)
Quarter: 2004Q2

REPORT INFORMATION
  Report Type: 
  Country: None (occurrence: None)
  Receive Date: 20040506
  Receipt Date: 20040430
  Transmission Date: 20050107
  Serious: Yes (Life-Threatening, Hospitalization, Disabling, Other)
  Sender: FDA-Public Use
  Company Number: 200413334US

PATIENT
  Age: 22 Year
  Sex: Female

DRUGS (1)
  1. BENZACLIN [Suspect]
     Dosage: DOSE: UNKNOWN

REACTIONS (1)
  - COLITIS ULCERATIVE [None]
